FAERS Safety Report 25742784 (Version 1)
Quarter: 2025Q3

REPORT INFORMATION
  Report Type: Spontaneous
  Country: US (occurrence: US)
  Receive Date: 20250830
  Receipt Date: 20250830
  Transmission Date: 20251021
  Serious: Yes (Death)
  Sender: AMGEN
  Company Number: US-AMGEN-USASP2025171150

PATIENT

DRUGS (1)
  1. INTERFERON GAMMA-1B [Suspect]
     Active Substance: INTERFERON GAMMA-1B
     Indication: Idiopathic pulmonary fibrosis
     Dosage: 200 MICROGRAM, 3 TIMES/WK
     Route: 058

REACTIONS (1)
  - Death [Fatal]
